FAERS Safety Report 8829355 (Version 3)
Quarter: 2012Q4

REPORT INFORMATION
  Report Type: 
  Country: JP (occurrence: JP)
  Receive Date: 20121008
  Receipt Date: 20121210
  Transmission Date: 20130627
  Serious: Yes (Hospitalization)
  Sender: FDA-Public Use
  Company Number: JP-GE HEALTHCARE MEDICAL DIAGNOSTICS-OMPQ-NO-1210S-1005

PATIENT
  Age: 80 Year
  Sex: Male

DRUGS (5)
  1. OMNIPAQUE [Suspect]
     Indication: AORTIC ANEURYSM REPAIR
     Route: 042
     Dates: start: 20090911, end: 20090911
  2. OMNIPAQUE [Suspect]
     Indication: DIAGNOSTIC PROCEDURE
  3. LIPLE [Concomitant]
  4. CEFAMEZIN ALPHA [Concomitant]
  5. SOLDEM 1 [Concomitant]

REACTIONS (2)
  - Renal failure [Recovered/Resolved with Sequelae]
  - Blood creatinine increased [Recovered/Resolved with Sequelae]
